FAERS Safety Report 8574874-7 (Version None)
Quarter: 2012Q3

REPORT INFORMATION
  Report Type: 
  Country: None (occurrence: None)
  Receive Date: 20120807
  Receipt Date: 20120725
  Transmission Date: 20120928
  Serious: Yes (Other)
  Sender: FDA-Public Use
  Company Number: US-ELI_LILLY_AND_COMPANY-US201207008502

PATIENT
  Sex: Male

DRUGS (3)
  1. LANTUS [Concomitant]
  2. HUMALOG [Suspect]
     Indication: DIABETES MELLITUS
     Dosage: 5 U, EACH MORNING
     Dates: start: 20080101
  3. HUMALOG [Suspect]
     Dosage: UNK, PRN
     Dates: start: 20080101

REACTIONS (1)
  - HYPOGLYCAEMIC COMA [None]
